FAERS Safety Report 20046224 (Version 4)
Quarter: 2022Q3

REPORT INFORMATION
  Report Type: Spontaneous
  Country: JP (occurrence: JP)
  Receive Date: 20211109
  Receipt Date: 20220922
  Transmission Date: 20221027
  Serious: Yes (Hospitalization, Other)
  Sender: FDA-Public Use
  Company Number: JP-ORGANON-O2111JPN000078JAA

PATIENT
  Age: 71 Year
  Sex: Female
  Weight: 33 kg

DRUGS (12)
  1. CARBIDOPA\LEVODOPA [Suspect]
     Active Substance: CARBIDOPA\LEVODOPA
     Indication: Parkinson^s disease
     Dosage: UNK
     Route: 048
     Dates: start: 2016, end: 2016
  2. CARBIDOPA\LEVODOPA [Suspect]
     Active Substance: CARBIDOPA\LEVODOPA
     Dosage: LEVODOPA 450 MG/CARBIDOPA 45 MG, GRADUAL INCREASE, STOPPED ON THE HOSPITALIZED DAY 2
     Route: 048
     Dates: start: 2016, end: 2016
  3. CARBIDOPA\LEVODOPA [Suspect]
     Active Substance: CARBIDOPA\LEVODOPA
     Dosage: LEVODOPA 300 MG/CARBIDOPA 30 MG, FROM THE HOSPITALIZED DAY 3 TO DAY 11
     Route: 048
     Dates: start: 202106, end: 202106
  4. CARBIDOPA\LEVODOPA [Suspect]
     Active Substance: CARBIDOPA\LEVODOPA
     Dosage: LEVODOPA 400 MG/CARBIDOPA 40 MG, FROM THE HOSPITALIZED DAY 12 TO DAY 17
     Route: 048
     Dates: start: 202106, end: 2021
  5. CARBIDOPA\LEVODOPA [Suspect]
     Active Substance: CARBIDOPA\LEVODOPA
     Dosage: LEVODOPA 450 MG/CARBIDOPA 45 MG, FROM THE HOSPITALIZED DAY 18-
     Route: 048
     Dates: start: 2021
  6. ISTRADEFYLLINE [Suspect]
     Active Substance: ISTRADEFYLLINE
     Indication: Parkinson^s disease
     Dosage: 20 MILLIGRAM/DAY
     Route: 048
     Dates: start: 2018, end: 2021
  7. ISTRADEFYLLINE [Suspect]
     Active Substance: ISTRADEFYLLINE
     Dosage: UNK
     Route: 048
     Dates: start: 202105, end: 202106
  8. ROPINIROLE HYDROCHLORIDE [Concomitant]
     Active Substance: ROPINIROLE HYDROCHLORIDE
     Indication: Parkinson^s disease
     Dosage: 8 MILLIGRAM
     Route: 048
     Dates: start: 201407, end: 202106
  9. RASAGILINE MESYLATE [Concomitant]
     Active Substance: RASAGILINE MESYLATE
     Indication: Parkinson^s disease
     Dosage: 0.5 MILLIGRAM
     Route: 048
     Dates: start: 2020, end: 202106
  10. ENTACAPONE [Concomitant]
     Active Substance: ENTACAPONE
     Indication: Parkinson^s disease
     Dosage: 500 MILLIGRAM
     Route: 065
     Dates: start: 2018, end: 202106
  11. ENTACAPONE [Concomitant]
     Active Substance: ENTACAPONE
     Dosage: 400 MILLIGRAM
     Route: 065
     Dates: start: 202106, end: 2021
  12. ENTACAPONE [Concomitant]
     Active Substance: ENTACAPONE
     Dosage: 500 MILLIGRAM
     Route: 065
     Dates: start: 2021

REACTIONS (1)
  - Parkinsonism hyperpyrexia syndrome [Recovered/Resolved]

NARRATIVE: CASE EVENT DATE: 20210601
